FAERS Safety Report 6520097-2 (Version None)
Quarter: 2009Q4

REPORT INFORMATION
  Report Type: 
  Country: None (occurrence: None)
  Receive Date: 20091229
  Receipt Date: 20091223
  Transmission Date: 20100525
  Serious: Yes (Life-Threatening, Other)
  Sender: FDA-Public Use
  Company Number: PHHY2009BB58774

PATIENT
  Age: 8 Year
  Sex: Male

DRUGS (1)
  1. LAMISIL [Suspect]
     Indication: TINEA CAPITIS
     Dosage: 125 MG, UNK
     Route: 048
     Dates: start: 20091113

REACTIONS (4)
  - ABDOMINAL PAIN [None]
  - ANAPHYLACTIC REACTION [None]
  - LETHARGY [None]
  - UNRESPONSIVE TO STIMULI [None]
